FAERS Safety Report 5569409-7 (Version None)
Quarter: 2007Q4

REPORT INFORMATION
  Report Type: 
  Country: None (occurrence: None)
  Receive Date: 20071220
  Receipt Date: 20071210
  Transmission Date: 20080405
  Serious: Yes (Other)
  Sender: FDA-Public Use
  Company Number: US-JNJFOC-20071203699

PATIENT
  Sex: Female
  Weight: 75.75 kg

DRUGS (3)
  1. FENTANYL TRANSDERMAL SYSTEM [Suspect]
     Indication: PAIN
     Dosage: TWO 100UG/HR PATCHES
     Route: 062
  2. PRIMIDONE [Concomitant]
     Indication: CONVULSION
     Route: 048
  3. TEMAZEPAM [Concomitant]
     Indication: SLEEP DISORDER
     Dosage: AT BEDTIME, AS NEEDED
     Route: 048

REACTIONS (7)
  - APPLICATION SITE ERYTHEMA [None]
  - BEDRIDDEN [None]
  - BLOOD PRESSURE ABNORMAL [None]
  - CHILLS [None]
  - DRUG ADMINISTERED AT INAPPROPRIATE SITE [None]
  - PAIN [None]
  - THERAPEUTIC RESPONSE DECREASED [None]
